FAERS Safety Report 8941023 (Version 3)
Quarter: 2013Q1

REPORT INFORMATION
  Report Type: Spontaneous
  Country: US (occurrence: US)
  Receive Date: 20121203
  Receipt Date: 20130326
  Transmission Date: 20140127
  Serious: Yes (Other)
  Sender: FDA-Public Use
  Company Number: US-PFIZER INC-2012299394

PATIENT
  Sex: Male

DRUGS (3)
  1. PHENYTOIN [Suspect]
     Dosage: UNK
  2. DILANTIN [Suspect]
     Indication: EPILEPSY
     Dosage: 100 MG
     Route: 048
     Dates: start: 1968
  3. DILANTIN [Suspect]
     Indication: CONVULSION

REACTIONS (3)
  - Neuropathy peripheral [Unknown]
  - Pain in extremity [Not Recovered/Not Resolved]
  - Paraesthesia [Unknown]
